FAERS Safety Report 6287494-4 (Version None)
Quarter: 2009Q3

REPORT INFORMATION
  Report Type: 
  Country: None (occurrence: None)
  Receive Date: 20090727
  Receipt Date: 20090727
  Transmission Date: 20100115
  Serious: Yes (Hospitalization)
  Sender: FDA-Public Use
  Company Number: US-JNJFOC-20090706863

PATIENT
  Age: 61 Year
  Sex: Female

DRUGS (30)
  1. DECITABINE (DECITABINE) LYOPHILIZED POWDER [Suspect]
     Indication: ACUTE MYELOID LEUKAEMIA
     Dosage: 35 MG, 1 IN 1 DAY, INTRAVENOUS; 27 MG, 1 IN 1 DAY, INTRAVENOUS
     Route: 042
     Dates: start: 20080811, end: 20080815
  2. DECITABINE (DECITABINE) LYOPHILIZED POWDER [Suspect]
     Indication: ACUTE MYELOID LEUKAEMIA
     Dosage: 35 MG, 1 IN 1 DAY, INTRAVENOUS; 27 MG, 1 IN 1 DAY, INTRAVENOUS
     Route: 042
     Dates: start: 20090406, end: 20090410
  3. VORINOSTAT (VORINOSTAT) CAPSULE [Suspect]
     Indication: ACUTE MYELOID LEUKAEMIA
     Dosage: SEE IMAGE
     Route: 048
     Dates: start: 20080816, end: 20080829
  4. VORINOSTAT (VORINOSTAT) CAPSULE [Suspect]
     Indication: ACUTE MYELOID LEUKAEMIA
     Dosage: SEE IMAGE
     Route: 048
     Dates: start: 20080920, end: 20081003
  5. VORINOSTAT (VORINOSTAT) CAPSULE [Suspect]
     Indication: ACUTE MYELOID LEUKAEMIA
     Dosage: SEE IMAGE
     Route: 048
     Dates: start: 20081018, end: 20081031
  6. VORINOSTAT (VORINOSTAT) CAPSULE [Suspect]
     Indication: ACUTE MYELOID LEUKAEMIA
     Dosage: SEE IMAGE
     Route: 048
     Dates: start: 20081115, end: 20081128
  7. VORINOSTAT (VORINOSTAT) CAPSULE [Suspect]
     Indication: ACUTE MYELOID LEUKAEMIA
     Dosage: SEE IMAGE
     Route: 048
     Dates: start: 20081220, end: 20090102
  8. VORINOSTAT (VORINOSTAT) CAPSULE [Suspect]
     Indication: ACUTE MYELOID LEUKAEMIA
     Dosage: SEE IMAGE
     Route: 048
     Dates: start: 20090131, end: 20090210
  9. VORINOSTAT (VORINOSTAT) CAPSULE [Suspect]
     Indication: ACUTE MYELOID LEUKAEMIA
     Dosage: SEE IMAGE
     Route: 048
     Dates: start: 20090307, end: 20090314
  10. VORINOSTAT (VORINOSTAT) CAPSULE [Suspect]
     Indication: ACUTE MYELOID LEUKAEMIA
     Dosage: SEE IMAGE
     Route: 048
     Dates: start: 20090411, end: 20090420
  11. TYLENOL (CAPLET) [Concomitant]
  12. DILTIAZEM HYDROCHLORIDE (DILTIAZEM HYDROCHLORIDE) UNSPECIFIED [Concomitant]
  13. ATENOLOL (ATENOLOL) UNSPECIFIED [Concomitant]
  14. ANZEMET (DOLASETRON MESILATE) UNSPECIFIED [Concomitant]
  15. ATEROL (SULODEXIDE) UNSPECIFIED [Concomitant]
  16. BENADRYL (DIPHENHYDRAMINE HYDROCHLORIDE) UNSPECIFIED [Concomitant]
  17. RED BLOOD CELLS (RED BLOOD CELLS) UNSPECIFIED [Concomitant]
  18. NEUPOGEN (FILGRASTIM) UNSPECIFIED [Concomitant]
  19. PLATELET CONCENTRATE (PLATELETS, CONCENTRATED) UNSPECIFIED [Concomitant]
  20. NEULASTA (PEGFILGRASTIM) UNSPECIFIED [Concomitant]
  21. ACYCLOVIR (ACICLOVIR) UNSPECIFIED [Concomitant]
  22. UNSPECIFIED MOUTHWASH (STOMATOLOGICALS, MOUTH PREPARATIONS) UNSPECIFIE [Concomitant]
  23. GENTAMICIN (GENTAMICIN) UNSPECIFIED [Concomitant]
  24. VANCOMYCIN [Concomitant]
  25. FLAGYL [Concomitant]
  26. LEVAQUIN [Concomitant]
  27. POTASSIUM CHLORIDE (POTASSIUM CHLORIDE) UNSPECIFIED [Concomitant]
  28. ERYTHROMYCIN OPHTHALMIC OINTMENT (ERYTHROMYCIN) UNSPECIFIED [Concomitant]
  29. ULTRAM [Concomitant]
  30. LIPITOR (ATORVASTATIN CALCIUM) UNSPECIFIED [Concomitant]

REACTIONS (7)
  - CELLULITIS ORBITAL [None]
  - CHRONIC OBSTRUCTIVE PULMONARY DISEASE [None]
  - FEBRILE NEUTROPENIA [None]
  - PALMAR-PLANTAR ERYTHRODYSAESTHESIA SYNDROME [None]
  - PNEUMONIA PRIMARY ATYPICAL [None]
  - SINUS BRADYCARDIA [None]
  - THROMBOCYTOPENIA [None]
